FAERS Safety Report 16446509 (Version 1)
Quarter: 2019Q2

REPORT INFORMATION
  Report Type: Spontaneous
  Country: BR (occurrence: BR)
  Receive Date: 20190618
  Receipt Date: 20190618
  Transmission Date: 20190711
  Serious: Yes (Hospitalization)
  Sender: FDA-Public Use
  Company Number: BR-PFIZER INC-2019255540

PATIENT
  Age: 36 Year
  Sex: Male

DRUGS (1)
  1. VYNDAQEL [Suspect]
     Active Substance: TAFAMIDIS MEGLUMINE
     Dosage: UNK
     Dates: start: 201810, end: 201901

REACTIONS (5)
  - Dizziness postural [Unknown]
  - Emotional disorder [Unknown]
  - Diarrhoea [Unknown]
  - Balance disorder [Unknown]
  - Syncope [Unknown]
